FAERS Safety Report 9617264 (Version 2)
Quarter: 2013Q4

REPORT INFORMATION
  Report Type: Report from Study
  Country: IT (occurrence: IT)
  Receive Date: 20131011
  Receipt Date: 20131113
  Transmission Date: 20140711
  Serious: Yes (Death)
  Sender: FDA-Public Use
  Company Number: IT-CELGENEUS-083-21880-13100074

PATIENT
  Age: 79 Year
  Sex: Male
  Weight: 90 kg

DRUGS (7)
  1. REVLIMID [Suspect]
     Indication: ACUTE MYELOID LEUKAEMIA
     Dosage: 10 MILLIGRAM
     Route: 048
     Dates: start: 20130726
  2. REVLIMID [Suspect]
     Route: 048
     Dates: start: 20130907, end: 20130927
  3. CYTARABINE [Suspect]
     Indication: ACUTE MYELOID LEUKAEMIA
     Dosage: 40 MILLIGRAM
     Route: 065
     Dates: start: 20130726
  4. CYTARABINE [Suspect]
     Dosage: 20 MILLIGRAM
     Route: 065
     Dates: start: 20130907, end: 20130918
  5. MERREM [Concomitant]
     Indication: INFECTION
     Dosage: 3 GRAM
     Route: 065
     Dates: start: 20130912, end: 20130928
  6. CORDARONE [Concomitant]
     Indication: ATRIAL FIBRILLATION
     Route: 065
     Dates: start: 19980201, end: 20130928
  7. ZOVIRAX [Concomitant]
     Indication: VIRAL INFECTION
     Dosage: 1200 MILLIGRAM
     Route: 065
     Dates: start: 20130915, end: 20130928

REACTIONS (2)
  - Multi-organ failure [Fatal]
  - Acute myeloid leukaemia [Fatal]
